FAERS Safety Report 11233077 (Version 2)
Quarter: 2015Q3

REPORT INFORMATION
  Report Type: Spontaneous
  Country: PH (occurrence: PH)
  Receive Date: 20150701
  Receipt Date: 20150926
  Transmission Date: 20151125
  Serious: Yes (Death, Hospitalization, Other)
  Sender: FDA-Public Use
  Company Number: PH-MERCK-1506PHL014904

PATIENT
  Age: 60 Year
  Sex: Male

DRUGS (1)
  1. JANUVIA [Suspect]
     Active Substance: SITAGLIPTIN PHOSPHATE
     Indication: DIABETES MELLITUS
     Dosage: ONE TABLET, BID
     Route: 048
     Dates: start: 201406, end: 201508

REACTIONS (3)
  - Colon cancer [Fatal]
  - Intestinal resection [Unknown]
  - Adverse event [Unknown]

NARRATIVE: CASE EVENT DATE: 201501
